FAERS Safety Report 4617402-0 (Version None)
Quarter: 2005Q1

REPORT INFORMATION
  Report Type: 
  Country: None (occurrence: None)
  Receive Date: 20050323
  Receipt Date: 20050318
  Transmission Date: 20050727
  Serious: Yes (Life-Threatening)
  Sender: FDA-Public Use
  Company Number: US-MERCK-0503USA03409

PATIENT
  Age: 54 Year
  Sex: Female

DRUGS (11)
  1. VYTORIN [Suspect]
     Indication: BLOOD CHOLESTEROL INCREASED
     Route: 048
     Dates: start: 20050301, end: 20050301
  2. ADVAIR DISKUS 100/50 [Concomitant]
     Route: 065
  3. ALBUTEROL [Concomitant]
     Route: 065
  4. COMBIVENT [Concomitant]
     Route: 065
  5. PROTONIX [Concomitant]
     Route: 065
  6. POTASSIUM (UNSPECIFIED) [Concomitant]
     Route: 065
  7. NASONEX [Concomitant]
     Route: 065
  8. PLAVIX [Concomitant]
     Route: 065
  9. DITROPAN XL [Concomitant]
     Route: 065
  10. FUROSEMIDE [Concomitant]
     Route: 065
  11. [THERAPY UNSPECIFIED] [Concomitant]
     Route: 065

REACTIONS (1)
  - OEDEMA PERIPHERAL [None]
